FAERS Safety Report 10657849 (Version 1)
Quarter: 2014Q4

REPORT INFORMATION
  Report Type: Spontaneous
  Country: US (occurrence: None)
  Receive Date: 20141205
  Receipt Date: 20141205
  Transmission Date: 20150529
  Serious: No
  Sender: FDA-Public Use
  Company Number: USA-2014102145

PATIENT
  Age: 83 Year
  Sex: Male
  Weight: 115.03 kg

DRUGS (28)
  1. METHYLPREDNISOLONE (METHYLPREDNISOLONE) [Concomitant]
     Active Substance: METHYLPREDNISOLONE
  2. DEXTROSE (GLUCOSE) [Concomitant]
  3. AMLODIPINE BESYLATE (AMLODIPINE BESILATE) [Concomitant]
     Active Substance: AMLODIPINE BESYLATE
  4. POTASSIUM CHLORIDE (POTASSIUM CHLORIDE) [Concomitant]
     Active Substance: POTASSIUM CHLORIDE
  5. TYLENOL [Concomitant]
     Active Substance: ACETAMINOPHEN
  6. CARFILZOMIB (CARFILZOMIB) [Concomitant]
  7. NORCO (PARACETAMOL, HYDROCODONE BITARTRATE) [Concomitant]
  8. COUMADIN (WARFARIN SODIUM) (TABLETS) [Concomitant]
  9. GLUCOSAMINE 1500 COMPLEX (GLUCOSAMINE HYDROCHLORIDE, GLUCOSAMINE SULFATE) [Concomitant]
  10. LOTRISONE (BETAMETHASONE DIPROPIONATE, CLOTRIMAZOLE) [Concomitant]
  11. MULTIVITAMINS (ERGOCALCIFEROL, ASCORBIC ACID, FO] ACID, THIAMINE HYDROCHLORIDE, RETINOL, RIBOFLAV: NICOTINAMIDE, PANTHENOL) [Concomitant]
  12. DEXAMETHASONE SODIUM PHOSPHATE (DEXAMETHASONE SOP PHOSPHATE) [Concomitant]
  13. ARANESP [Concomitant]
     Active Substance: DARBEPOETIN ALFA
  14. INFLUENZA VACCINE (INFLUENZA VACCINE) [Concomitant]
  15. ENOXAPARIN SODIUM (ENOXAPARIN SODIUM) [Concomitant]
  16. POTASSIUM CHLORIDE (POTASSIUM CHLORIDE) [Concomitant]
     Active Substance: POTASSIUM CHLORIDE
  17. RAMIPRIL (RAMIPRIL) [Concomitant]
     Active Substance: RAMIPRIL
  18. DALTEPARIN SODIUM (DALTEPARIN SODIUM) [Concomitant]
  19. ASPIRIN(ACETYLSALICYLIC ACID) (TABLETS) [Concomitant]
  20. COMPAZINE (PROCHLORPERAZINE EDISYLATE) (TABLETS) [Concomitant]
  21. FUROSEMIDE (FUROSEMIDE) [Concomitant]
     Active Substance: FUROSEMIDE
  22. VITAMIN E (VITAMIN E NOS) [Concomitant]
  23. POMALYST [Suspect]
     Active Substance: POMALIDOMIDE
     Indication: PLASMA CELL MYELOMA
     Dosage: 21 IN 21 D
     Route: 048
     Dates: start: 20141002
  24. CALCIUM PLUS VITAMIN D (COLECALCIFEROL, [Concomitant]
  25. MORPHINE SULFATE (MORPHINE SULFATE) [Concomitant]
  26. NORMAL SALINE (SODIUM CHLORIDE) [Concomitant]
  27. FINASTERIDE(FINASTERIDE) [Concomitant]
     Active Substance: FINASTERIDE
  28. ACYCLOVIR (ACICLOVIR) (TABLETS) [Concomitant]

REACTIONS (2)
  - Adverse drug reaction [None]
  - Rash [None]

NARRATIVE: CASE EVENT DATE: 2014
